FAERS Safety Report 5714158-5 (Version None)
Quarter: 2008Q2

REPORT INFORMATION
  Report Type: 
  Country: None (occurrence: None)
  Receive Date: 20080423
  Receipt Date: 20070608
  Transmission Date: 20081010
  Serious: No
  Sender: FDA-Public Use
  Company Number: US-KINGPHARMUSA00001-K200700704

PATIENT

DRUGS (3)
  1. SKELAXIN [Suspect]
     Indication: BACK PAIN
     Dosage: 800 MG, 3 TIMES A DAY PRN
     Route: 048
     Dates: start: 20070601
  2. SOMA [Concomitant]
     Dosage: UNK, PRN
     Route: 048
     Dates: start: 20070601
  3. ANTIVERT /00007101/ [Concomitant]
     Route: 048
     Dates: start: 20070601

REACTIONS (1)
  - HYPERHIDROSIS [None]
